FAERS Safety Report 13650332 (Version 1)
Quarter: 2017Q2

REPORT INFORMATION
  Report Type: Spontaneous
  Country: AU (occurrence: AU)
  Receive Date: 20170614
  Receipt Date: 20170614
  Transmission Date: 20170830
  Serious: Yes (Other)
  Sender: FDA-Public Use
  Company Number: AU-ACCORD-052639

PATIENT
  Age: 16 Year
  Sex: Male
  Weight: 44 kg

DRUGS (2)
  1. OXYCODONE/OXYCODONE HYDROCHLORIDE/OXYCODONE PECTINATE/OXYCODONE TEREPHTHALATE [Concomitant]
     Indication: PAIN
     Route: 048
  2. CISPLATIN. [Suspect]
     Active Substance: CISPLATIN
     Indication: INTRAPERITONEAL HYPERTHERMIC CHEMOTHERAPY

REACTIONS (3)
  - Hypophosphataemia [Unknown]
  - Hypercalcaemia [Unknown]
  - Renal tubular disorder [Unknown]
